FAERS Safety Report 9003092 (Version 2)
Quarter: 2013Q1

REPORT INFORMATION
  Report Type: Spontaneous
  Country: US (occurrence: US)
  Receive Date: 20130108
  Receipt Date: 20130322
  Transmission Date: 20140127
  Serious: No
  Sender: FDA-Public Use
  Company Number: US-009507513-1212USA010840

PATIENT
  Age: 63 Year
  Sex: Male

DRUGS (3)
  1. VICTRELIS [Suspect]
     Indication: HEPATITIS C
     Dosage: 800 MG, TID, 7 TO 9 HOURS APART
     Route: 048
     Dates: start: 20121220
  2. PEGASYS [Concomitant]
     Dosage: 180 MICROGRAM, QW
     Route: 058
     Dates: start: 201211
  3. RIBAPAK [Concomitant]
     Dosage: 600 MG, EVERY MORNING AND EVENING
     Route: 048
     Dates: start: 201211

REACTIONS (1)
  - Influenza like illness [Not Recovered/Not Resolved]
